FAERS Safety Report 14447248 (Version 2)
Quarter: 2021Q1

REPORT INFORMATION
  Report Type: Spontaneous
  Country: GB (occurrence: GB)
  Receive Date: 20180126
  Receipt Date: 20210308
  Transmission Date: 20210419
  Serious: Yes (Other)
  Sender: FDA-Public Use
  Company Number: GB-PFIZER INC-2018034004

PATIENT
  Age: 50 Year
  Sex: Male

DRUGS (1)
  1. DAPTOMYCIN. [Suspect]
     Active Substance: DAPTOMYCIN
     Dosage: 350 MG, UNK
     Route: 040
     Dates: start: 20171231, end: 20171231

REACTIONS (4)
  - Hyperhidrosis [Recovered/Resolved]
  - Hallucination [Unknown]
  - Pharyngeal swelling [Recovered/Resolved]
  - Swelling [Unknown]

NARRATIVE: CASE EVENT DATE: 20171231
